FAERS Safety Report 16772215 (Version 1)
Quarter: 2019Q4

REPORT INFORMATION
  Report Type: Spontaneous
  Country: US (occurrence: US)
  Receive Date: 20190904
  Receipt Date: 20190904
  Transmission Date: 20200122
  Serious: Yes (Death)
  Sender: FDA-Public Use
  Company Number: None

PATIENT
  Age: 87 Year
  Sex: Female
  Weight: 62.28 kg

DRUGS (16)
  1. ASCORBIC ACID. [Concomitant]
     Active Substance: ASCORBIC ACID
  2. FASLODEX [Concomitant]
     Active Substance: FULVESTRANT
  3. REFRESH PLUS [Concomitant]
     Active Substance: CARBOXYMETHYLCELLULOSE SODIUM
  4. GLYCOLAX [Concomitant]
     Active Substance: POLYETHYLENE GLYCOL 3350
  5. THERAGRAN-M [Concomitant]
     Active Substance: VITAMINS
  6. DESITIN [Concomitant]
     Active Substance: ZINC OXIDE
  7. ONDANSETRON [Concomitant]
     Active Substance: ONDANSETRON
  8. VITAMIN D (CHOLECALCIFEROL) [Concomitant]
     Active Substance: CHOLECALCIFEROL
  9. FOAM DRESSING CIRCULAR BORDER [Concomitant]
  10. NORCO [Concomitant]
     Active Substance: ACETAMINOPHEN\HYDROCODONE BITARTRATE
  11. NYSTATIN. [Concomitant]
     Active Substance: NYSTATIN
  12. IBRANCE [Suspect]
     Active Substance: PALBOCICLIB
     Indication: BREAST CANCER
     Dosage: ?          OTHER FREQUENCY:DAILY X 21/7OFF;?
     Route: 048
     Dates: start: 20181017
  13. LASIX [Concomitant]
     Active Substance: FUROSEMIDE
  14. CYANOCOBALAMIN. [Concomitant]
     Active Substance: CYANOCOBALAMIN
  15. DRONABINOL. [Concomitant]
     Active Substance: DRONABINOL
  16. POTASSIUM [Concomitant]
     Active Substance: POTASSIUM

REACTIONS (1)
  - Death [None]

NARRATIVE: CASE EVENT DATE: 20190817
